FAERS Safety Report 11136636 (Version 2)
Quarter: 2016Q2

REPORT INFORMATION
  Report Type: Report from Study
  Country: US (occurrence: US)
  Receive Date: 20150526
  Receipt Date: 20160516
  Transmission Date: 20160815
  Serious: No
  Sender: FDA-Public Use
  Company Number: US-MALLINCKRODT-T201501795

PATIENT
  Age: 71 Year
  Sex: Female

DRUGS (2)
  1. REPOSITORY CORTICOTROPIN INJECTION [Suspect]
     Active Substance: CORTICOTROPIN
     Indication: RHEUMATOID ARTHRITIS
     Dosage: 80 UNITS 2X WEEKLY
     Route: 030
     Dates: start: 20150119
  2. REPOSITORY CORTICOTROPIN INJECTION [Suspect]
     Active Substance: CORTICOTROPIN
     Dosage: 80 U 2X/WEEK
     Route: 030

REACTIONS (11)
  - Injection site pain [Not Recovered/Not Resolved]
  - Alopecia [Unknown]
  - Injection site reaction [Not Recovered/Not Resolved]
  - Abdominal mass [Not Recovered/Not Resolved]
  - Weight decreased [Unknown]
  - Trigger finger [Unknown]
  - Injection site injury [Not Recovered/Not Resolved]
  - Increased appetite [Unknown]
  - Arthralgia [Not Recovered/Not Resolved]
  - Pain [Not Recovered/Not Resolved]
  - Injection site haemorrhage [Not Recovered/Not Resolved]

NARRATIVE: CASE EVENT DATE: 20151115
